FAERS Safety Report 14692311 (Version 1)
Quarter: 2018Q1

REPORT INFORMATION
  Report Type: Spontaneous
  Country: US (occurrence: US)
  Receive Date: 20180329
  Receipt Date: 20180329
  Transmission Date: 20180509
  Serious: No
  Sender: FDA-Public Use
  Company Number: US-ORCHID HEALTHCARE-2044736

PATIENT
  Sex: Female

DRUGS (3)
  1. PHENYLEPHRINE HCL NASAL SPRAY [Concomitant]
     Route: 065
  2. ACETAMINOPHEN. [Concomitant]
     Active Substance: ACETAMINOPHEN
     Route: 065
  3. IBANDRONATE SODIUM. [Suspect]
     Active Substance: IBANDRONATE SODIUM
     Indication: OSTEOPENIA
     Route: 048
     Dates: start: 20171005, end: 20171005

REACTIONS (2)
  - Arthralgia [Not Recovered/Not Resolved]
  - Musculoskeletal pain [Not Recovered/Not Resolved]

NARRATIVE: CASE EVENT DATE: 20171006
